FAERS Safety Report 9865126 (Version 1)
Quarter: 2014Q1

REPORT INFORMATION
  Report Type: Spontaneous
  Country: IT (occurrence: IT)
  Receive Date: 20140203
  Receipt Date: 20140203
  Transmission Date: 20141002
  Serious: Yes (Other)
  Sender: FDA-Public Use
  Company Number: PHHY2014IT010705

PATIENT
  Age: 10 Year
  Sex: Male

DRUGS (2)
  1. PARACETAMOL [Suspect]
     Indication: INFLUENZA LIKE ILLNESS
  2. PARACETAMOL [Suspect]
     Indication: PYREXIA

REACTIONS (6)
  - Hypersensitivity vasculitis [Recovered/Resolved]
  - Pruritus [Recovered/Resolved]
  - Purpura [Recovered/Resolved]
  - Rash erythematous [Recovered/Resolved]
  - Lymphocytic infiltration [Recovered/Resolved]
  - Extravasation [Recovered/Resolved]
